FAERS Safety Report 25223408 (Version 1)
Quarter: 2025Q2

REPORT INFORMATION
  Report Type: Spontaneous
  Country: AU (occurrence: AU)
  Receive Date: 20250422
  Receipt Date: 20250422
  Transmission Date: 20250716
  Serious: Yes (Other)
  Sender: GRIFOLS
  Company Number: AU-IGSA-BIG0034382

PATIENT
  Age: 79 Year
  Sex: Male

DRUGS (2)
  1. XEMBIFY [Suspect]
     Active Substance: HUMAN IMMUNOGLOBULIN G
     Indication: Hypogammaglobulinaemia
     Dosage: 7 GRAM, Q.WK.
     Route: 065
  2. XEMBIFY [Suspect]
     Active Substance: HUMAN IMMUNOGLOBULIN G
     Indication: Chronic lymphocytic leukaemia

REACTIONS (1)
  - Severe cutaneous adverse reaction [Unknown]

NARRATIVE: CASE EVENT DATE: 20250408
